FAERS Safety Report 6779134-2 (Version None)
Quarter: 2010Q2

REPORT INFORMATION
  Report Type: 
  Country: None (occurrence: None)
  Receive Date: 20100618
  Receipt Date: 20100609
  Transmission Date: 20101027
  Serious: Yes (Other)
  Sender: FDA-Public Use
  Company Number: US-BAYER-201025436NA

PATIENT
  Sex: Male

DRUGS (9)
  1. MAGNEVIST [Suspect]
     Indication: IMAGING PROCEDURE
  2. OMNISCAN [Suspect]
     Indication: IMAGING PROCEDURE
  3. OPTIMARK [Suspect]
     Indication: IMAGING PROCEDURE
     Dates: start: 20030206, end: 20030206
  4. OPTIMARK [Suspect]
     Dates: start: 20030329, end: 20030329
  5. OPTIMARK [Suspect]
     Dates: start: 20030724, end: 20030724
  6. MULTIHANCE [Suspect]
     Indication: IMAGING PROCEDURE
  7. PROHANCE [Suspect]
     Indication: IMAGING PROCEDURE
  8. UNSPECIFIED GBCA [Suspect]
     Dates: start: 20040401, end: 20040401
  9. UNSPECIFIED GBCA [Suspect]
     Dates: start: 20040601, end: 20040601

REACTIONS (8)
  - DEFORMITY [None]
  - GENERAL PHYSICAL HEALTH DETERIORATION [None]
  - JOINT CONTRACTURE [None]
  - NEPHROGENIC SYSTEMIC FIBROSIS [None]
  - PAIN [None]
  - SCAR [None]
  - SKIN DISORDER [None]
  - SKIN FIBROSIS [None]
